FAERS Safety Report 10029334 (Version 1)
Quarter: 2014Q1

REPORT INFORMATION
  Report Type: Spontaneous
  Country: BR (occurrence: BR)
  Receive Date: 20140321
  Receipt Date: 20140321
  Transmission Date: 20141002
  Serious: Yes (Other)
  Sender: FDA-Public Use
  Company Number: PHHY2014BR034499

PATIENT
  Sex: 0

DRUGS (2)
  1. FORASEQ [Suspect]
     Indication: EMPHYSEMA
     Dosage: 4 DF, DAILY
     Route: 055
     Dates: start: 201303, end: 20131020
  2. FORASEQ [Suspect]
     Dosage: UNK UKN, UNK

REACTIONS (4)
  - Cerebrovascular accident [Recovering/Resolving]
  - Dysphonia [Recovering/Resolving]
  - Speech disorder [Recovering/Resolving]
  - Hypoaesthesia [Recovered/Resolved]
